FAERS Safety Report 18811749 (Version 2)
Quarter: 2021Q3

REPORT INFORMATION
  Report Type: Other
  Country: JP (occurrence: JP)
  Receive Date: 20210129
  Receipt Date: 20210716
  Transmission Date: 20211014
  Serious: Yes (Other)
  Sender: FDA-Public Use
  Company Number: JP-ROCHE-2758966

PATIENT
  Age: 72 Year
  Sex: Female
  Weight: 45.4 kg

DRUGS (7)
  1. TECENTRIQ [Suspect]
     Active Substance: ATEZOLIZUMAB
     Indication: NON-SMALL CELL LUNG CANCER
     Route: 042
  2. BEVACIZUMAB. [Suspect]
     Active Substance: BEVACIZUMAB
     Indication: NON-SMALL CELL LUNG CANCER
     Route: 065
  3. CARBOPLATIN. [Suspect]
     Active Substance: CARBOPLATIN
     Indication: NON-SMALL CELL LUNG CANCER
     Route: 065
  4. PACLITAXEL. [Suspect]
     Active Substance: PACLITAXEL
     Indication: NON-SMALL CELL LUNG CANCER
     Route: 065
  5. PREDNISOLONE. [Concomitant]
     Active Substance: PREDNISOLONE
     Dosage: 5 MG/DAY (1 MG/KG/DAY)
  6. URSODEOXYCHOLIC ACID [Concomitant]
     Active Substance: URSODIOL
  7. URSODEOXYCHOLIC ACID [Concomitant]
     Active Substance: URSODIOL

REACTIONS (2)
  - Liver injury [Unknown]
  - Hepatitis acute [Unknown]
